FAERS Safety Report 5027456-8 (Version None)
Quarter: 2006Q2

REPORT INFORMATION
  Report Type: 
  Country: None (occurrence: None)
  Receive Date: 20060501
  Receipt Date: 20060124
  Transmission Date: 20061013
  Serious: No
  Sender: FDA-Public Use
  Company Number: 200610474BWH

PATIENT
  Age: 55 Year
  Sex: Male

DRUGS (5)
  1. NEXAVAR [Suspect]
     Indication: RENAL CELL CARCINOMA STAGE UNSPECIFIED
     Dosage: 400 MG BID ORAL
     Route: 048
     Dates: start: 20060119
  2. ANTARA [Concomitant]
  3. DIOVAN HCT [Concomitant]
  4. EFFEXOR XR [Concomitant]
  5. ZETIA [Concomitant]

REACTIONS (1)
  - ABDOMINAL PAIN UPPER [None]
